FAERS Safety Report 18096313 (Version 1)
Quarter: 2020Q3

REPORT INFORMATION
  Report Type: Spontaneous
  Country: US (occurrence: US)
  Receive Date: 20200731
  Receipt Date: 20200731
  Transmission Date: 20201103
  Serious: Yes (Hospitalization, Other)
  Sender: FDA-Public Use
  Company Number: US-STRIDES ARCOLAB LIMITED-2020SP008567

PATIENT
  Age: 35 Year
  Sex: Male

DRUGS (2)
  1. IBUPROFEN. [Suspect]
     Active Substance: IBUPROFEN
     Dosage: 3200 MILLIGRAM PER DAY, SEVERAL MONTHS
     Route: 065
  2. IBUPROFEN. [Suspect]
     Active Substance: IBUPROFEN
     Indication: BACK PAIN
     Dosage: 2400 MILLIGRAM PER DAY, SEVERAL MONTHS
     Route: 065

REACTIONS (13)
  - Muscular weakness [Unknown]
  - Paralysis [Unknown]
  - Intentional product misuse [Unknown]
  - Hypokalaemia [Recovered/Resolved]
  - Renal tubular acidosis [Recovered/Resolved]
  - Myalgia [Unknown]
  - Abdominal pain [Unknown]
  - Metabolic acidosis [Recovered/Resolved]
  - Vomiting [Unknown]
  - Hypophagia [Unknown]
  - Nausea [Unknown]
  - Asthenia [Unknown]
  - Hypokinesia [Unknown]
